FAERS Safety Report 8581905-7 (Version None)
Quarter: 2012Q3

REPORT INFORMATION
  Report Type: 
  Country: None (occurrence: None)
  Receive Date: 20120801
  Receipt Date: 20120801
  Transmission Date: 20120928
  Serious: No
  Sender: FDA-Public Use
  Company Number: None

PATIENT
  Sex: Female

DRUGS (2)
  1. AMPYRA [Suspect]
  2. AMPYRA [Suspect]
     Indication: MULTIPLE SCLEROSIS
     Dosage: 10MG BID Q12? PO
     Route: 048
     Dates: start: 20120420

REACTIONS (1)
  - NO THERAPEUTIC RESPONSE [None]
